FAERS Safety Report 8005454-X (Version None)
Quarter: 2011Q4

REPORT INFORMATION
  Report Type: 
  Country: None (occurrence: None)
  Receive Date: 20111223
  Receipt Date: 20111212
  Transmission Date: 20120403
  Serious: Yes (Other)
  Sender: FDA-Public Use
  Company Number: FR-JNJFOC-20111205147

PATIENT
  Sex: Female
  Weight: 2.06 kg

DRUGS (7)
  1. ACETAMINOPHEN [Concomitant]
     Indication: FOETAL EXPOSURE DURING PREGNANCY
     Route: 064
     Dates: start: 20091006
  2. REMICADE [Suspect]
     Route: 064
     Dates: start: 20090724
  3. ROVAMYCINE [Concomitant]
     Indication: FOETAL EXPOSURE DURING PREGNANCY
     Route: 064
     Dates: start: 20091006
  4. REMICADE [Suspect]
     Indication: FOETAL EXPOSURE DURING PREGNANCY
     Route: 064
     Dates: start: 20090605
  5. REMICADE [Suspect]
     Route: 064
     Dates: start: 20090911
  6. REMICADE [Suspect]
     Route: 064
     Dates: start: 20091030
  7. REMICADE [Suspect]
     Route: 064
     Dates: start: 20091217

REACTIONS (1)
  - PREMATURE BABY [None]
